FAERS Safety Report 4337352-7 (Version None)
Quarter: 2004Q2

REPORT INFORMATION
  Report Type: 
  Country: None (occurrence: None)
  Receive Date: 20040406
  Receipt Date: 20031226
  Transmission Date: 20050107
  Serious: Yes (Hospitalization)
  Sender: FDA-Public Use
  Company Number: 354985

PATIENT
  Age: 39 Year
  Sex: Male
  Weight: 63.5 kg

DRUGS (1)
  1. FUZEON [Suspect]
     Indication: HIV INFECTION
     Dosage: 90 MG 2 PER DAY SUBCUTANEOUS
     Route: 058
     Dates: start: 20030615

REACTIONS (2)
  - MYCOBACTERIUM AVIUM COMPLEX INFECTION [None]
  - PYREXIA [None]
